FAERS Safety Report 5001319-6 (Version None)
Quarter: 2006Q2

REPORT INFORMATION
  Report Type: 
  Country: None (occurrence: None)
  Receive Date: 20060512
  Receipt Date: 20051207
  Transmission Date: 20061013
  Serious: Yes (Hospitalization)
  Sender: FDA-Public Use
  Company Number: US-MERCK-0512USA01272

PATIENT
  Age: 49 Year
  Sex: Male

DRUGS (14)
  1. VIOXX [Suspect]
     Indication: INFLAMMATION
     Route: 048
     Dates: start: 20030617, end: 20030925
  2. STADOL [Concomitant]
     Route: 065
  3. XANAX [Concomitant]
     Route: 065
  4. PLAVIX [Concomitant]
     Route: 065
  5. NAPROXEN [Concomitant]
     Route: 065
     Dates: start: 20030901
  6. ACETAMINOPHEN AND PROPOXYPHENE NAPSYLATE [Concomitant]
     Route: 065
  7. ACETAMINOPHEN AND HYDROCODONE BITARTRATE [Concomitant]
     Route: 065
  8. VIOXX [Suspect]
     Route: 048
     Dates: start: 20030617, end: 20030925
  9. VIOXX [Suspect]
     Route: 048
     Dates: start: 20010330, end: 20011023
  10. VIOXX [Suspect]
     Indication: ARTHRITIS
     Route: 048
     Dates: start: 20010330, end: 20011023
  11. VIOXX [Suspect]
     Route: 048
     Dates: start: 20030617, end: 20030925
  12. VIOXX [Suspect]
     Route: 048
     Dates: start: 20010330, end: 20011023
  13. VIOXX [Suspect]
     Route: 048
     Dates: start: 20030617, end: 20030925
  14. VIOXX [Suspect]
     Route: 048
     Dates: start: 20010330, end: 20011023

REACTIONS (1)
  - MYOCARDIAL INFARCTION [None]
